FAERS Safety Report 6340322-0 (Version None)
Quarter: 2009Q3

REPORT INFORMATION
  Report Type: 
  Country: None (occurrence: None)
  Receive Date: 20090904
  Receipt Date: 20070906
  Transmission Date: 20100115
  Serious: Yes (Other)
  Sender: FDA-Public Use
  Company Number: US-ASTRAZENECA-2007UW24576

PATIENT
  Age: 11649 Day
  Sex: Female
  Weight: 76.9 kg

DRUGS (16)
  1. SEROQUEL [Suspect]
     Indication: SLEEP DISORDER
     Route: 048
     Dates: start: 19990601, end: 20060501
  2. SEROQUEL [Suspect]
     Dosage: 200 MG-400 MG
     Route: 048
     Dates: start: 20030116
  3. NITROGLYCERIN [Concomitant]
     Dates: start: 20050830
  4. LISINOPRIL [Concomitant]
     Dates: start: 20071003
  5. LANTUS [Concomitant]
     Dates: start: 20071003
  6. PROMETHAZINE [Concomitant]
     Route: 048
     Dates: start: 20071003
  7. RANITIDINE [Concomitant]
     Route: 048
     Dates: start: 20080325
  8. TRAZODONE [Concomitant]
     Dosage: 100 MG-300 MG
     Route: 048
     Dates: start: 20071003
  9. ATIVAN [Concomitant]
     Dosage: 100 MG-300 MG
     Route: 048
     Dates: start: 20080325
  10. RISPERDAL [Concomitant]
     Route: 048
     Dates: start: 20080325
  11. ZETIA [Concomitant]
     Route: 048
     Dates: start: 20071003
  12. GABAPENTIN [Concomitant]
     Route: 048
     Dates: start: 20071003
  13. OMEPRAZOLE [Concomitant]
     Dates: start: 20071003
  14. PREDNISONE [Concomitant]
     Dosage: 5 MG-20 MG
     Dates: start: 20020914
  15. MORPHINE [Concomitant]
     Dosage: 15 MG-20 MG
     Dates: start: 20071001
  16. ATENOLOL [Concomitant]
     Dates: start: 20030114

REACTIONS (11)
  - BLOOD CHOLESTEROL INCREASED [None]
  - DIABETES MELLITUS [None]
  - DIABETES MELLITUS INADEQUATE CONTROL [None]
  - DIABETIC COMA [None]
  - DIABETIC GASTROPATHY [None]
  - DIABETIC NEPHROPATHY [None]
  - HYPERTENSION [None]
  - INSULIN-REQUIRING TYPE 2 DIABETES MELLITUS [None]
  - NEUROPATHY PERIPHERAL [None]
  - PANCREATITIS [None]
  - TYPE 2 DIABETES MELLITUS [None]
